FAERS Safety Report 9901174 (Version 2)
Quarter: 2014Q1

REPORT INFORMATION
  Report Type: Not Available
  Country: IT (occurrence: IT)
  Receive Date: 20140217
  Receipt Date: 20140311
  Transmission Date: 20141002
  Serious: Yes (Other)
  Sender: FDA-Public Use
  Company Number: IT-ASTELLAS-2014US001498

PATIENT
  Age: 53 Year
  Sex: Male

DRUGS (1)
  1. AMBISOME [Suspect]
     Indication: MUCOCUTANEOUS LEISHMANIASIS
     Dosage: 350 MG, PRN
     Route: 042
     Dates: start: 20140104, end: 20140104

REACTIONS (4)
  - Off label use [Unknown]
  - Hyperaemia [Recovered/Resolved]
  - Spinal pain [Recovered/Resolved]
  - Nausea [Recovered/Resolved]
